FAERS Safety Report 5322135-1 (Version None)
Quarter: 2007Q2

REPORT INFORMATION
  Report Type: 
  Country: None (occurrence: None)
  Receive Date: 20070507
  Receipt Date: 20070426
  Transmission Date: 20071010
  Serious: Yes (Hospitalization)
  Sender: FDA-Public Use
  Company Number: APP200700053

PATIENT
  Age: 69 Year
  Sex: Female

DRUGS (9)
  1. FLUOROURACIL [Suspect]
     Indication: GASTRIC CANCER
     Dosage: SEE IMAGE
     Route: 042
     Dates: start: 20060918, end: 20060922
  2. FLUOROURACIL [Suspect]
     Indication: GASTRIC CANCER
     Dosage: SEE IMAGE
     Route: 042
     Dates: start: 20060814
  3. CISPLATIN [Suspect]
     Indication: GASTRIC CANCER
     Dosage: SEE IMAGE
     Route: 042
     Dates: start: 20060918, end: 20060918
  4. CISPLATIN [Suspect]
     Indication: GASTRIC CANCER
     Dosage: SEE IMAGE
     Route: 042
     Dates: start: 20060814
  5. ARANESP [Concomitant]
  6. COUMADIN [Concomitant]
  7. DIOVAN [Concomitant]
  8. PRILOSEC [Concomitant]
  9. PROTONIX [Concomitant]

REACTIONS (9)
  - CATHETER SITE CELLULITIS [None]
  - DEHYDRATION [None]
  - MUCOSAL INFLAMMATION [None]
  - NAUSEA [None]
  - NEUTROPENIA [None]
  - PAIN [None]
  - RENAL FAILURE [None]
  - SMALL INTESTINAL OBSTRUCTION [None]
  - VOMITING [None]
